FAERS Safety Report 8880247 (Version 1)
Quarter: 2012Q4

REPORT INFORMATION
  Report Type: 
  Country: US (occurrence: US)
  Receive Date: 20121031
  Receipt Date: 20121031
  Transmission Date: 20130627
  Serious: No
  Sender: FDA-Public Use
  Company Number: US-ASTRAZENECA-2005UW02116

PATIENT
  Age: 63 Year
  Sex: Female
  Weight: 83.9 kg

DRUGS (23)
  1. CRESTOR [Suspect]
     Indication: BLOOD TRIGLYCERIDES INCREASED
     Route: 048
     Dates: start: 200501, end: 20050207
  2. SYMBICORT [Suspect]
     Indication: CHRONIC OBSTRUCTIVE PULMONARY DISEASE
     Dosage: 160 MCG TWO PUFFS
     Route: 055
     Dates: start: 201110
  3. NEXIUM [Suspect]
     Indication: GASTROOESOPHAGEAL REFLUX DISEASE
     Route: 048
     Dates: start: 2002
  4. METOPROLOL [Suspect]
     Indication: PALPITATIONS
     Route: 048
     Dates: start: 2002
  5. ESTRADIOL [Concomitant]
  6. POTASSIUM [Concomitant]
     Route: 048
  7. SYNTHROID [Concomitant]
     Indication: HYPOTHYROIDISM
     Route: 048
  8. TRAMADOL [Concomitant]
  9. TOPROL-XL [Concomitant]
  10. MOBIC [Concomitant]
  11. BUMETANIDE [Concomitant]
  12. FLEXERIL [Concomitant]
     Indication: MUSCLE SPASMS
  13. FLEXERIL [Concomitant]
     Indication: BONE PAIN
  14. DIGOXIN [Concomitant]
     Indication: ARRHYTHMIA
     Route: 048
     Dates: start: 2002
  15. CLONIDINE [Concomitant]
     Indication: ARRHYTHMIA
     Route: 048
     Dates: start: 2002
  16. LEXAPRO [Concomitant]
     Indication: DEPRESSED MOOD
     Route: 048
  17. SPIRIVA [Concomitant]
     Indication: CHRONIC OBSTRUCTIVE PULMONARY DISEASE
     Route: 055
     Dates: start: 201110
  18. ASPIRIN [Concomitant]
     Route: 048
  19. HYDROXIZINE [Concomitant]
     Indication: PRURITUS
     Route: 048
  20. B COMPLEX [Concomitant]
     Dosage: DAILY
     Route: 048
  21. D3 [Concomitant]
     Dosage: DAILY
     Route: 048
  22. ZETIA [Concomitant]
     Indication: BLOOD CHOLESTEROL
  23. UNNAMED MEDICATION [Concomitant]
     Indication: OEDEMA

REACTIONS (9)
  - Vocal cord disorder [Unknown]
  - Type 2 diabetes mellitus [Unknown]
  - Blood cholesterol abnormal [Unknown]
  - Visual impairment [Unknown]
  - Oedema [Unknown]
  - Aphonia [Unknown]
  - Muscular weakness [Unknown]
  - Fatigue [Unknown]
  - Intentional drug misuse [Unknown]
